FAERS Safety Report 12955895 (Version 2)
Quarter: 2016Q4

REPORT INFORMATION
  Report Type: Report from Study
  Country: TW (occurrence: TW)
  Receive Date: 20161118
  Receipt Date: 20161208
  Transmission Date: 20170207
  Serious: Yes (Hospitalization, Other)
  Sender: FDA-Public Use
  Company Number: TW-JNJFOC-20161108912

PATIENT
  Age: 69 Year
  Sex: Female
  Weight: 60 kg

DRUGS (1)
  1. STELARA [Suspect]
     Active Substance: USTEKINUMAB
     Indication: PSORIASIS
     Route: 058
     Dates: start: 20150303

REACTIONS (4)
  - Escherichia infection [Unknown]
  - Cholecystitis acute [Not Recovered/Not Resolved]
  - Pneumonia klebsiella [Unknown]
  - Aeromonas infection [Unknown]

NARRATIVE: CASE EVENT DATE: 20161105
